FAERS Safety Report 6379866-4 (Version None)
Quarter: 2009Q3

REPORT INFORMATION
  Report Type: 
  Country: None (occurrence: None)
  Receive Date: 20090928
  Receipt Date: 20090918
  Transmission Date: 20100115
  Serious: Yes (Other)
  Sender: FDA-Public Use
  Company Number: GB-JNJCH-2009025212

PATIENT
  Age: 12 Year
  Sex: Male

DRUGS (2)
  1. CALPOL PAEDIATRIC SUSPENSION SUGAR FREE [Suspect]
     Indication: DRUG USE FOR UNKNOWN INDICATION
     Dosage: TEXT:UNSPECIFIED
     Route: 048
  2. INSULIN [Concomitant]
     Indication: DIABETES MELLITUS
     Dosage: TEXT:UNSPECIFIED
     Route: 050

REACTIONS (2)
  - BACK PAIN [None]
  - DIABETES MELLITUS [None]
